FAERS Safety Report 20110642 (Version 1)
Quarter: 2021Q4

REPORT INFORMATION
  Report Type: Spontaneous
  Country: US (occurrence: None)
  Receive Date: 20211124
  Receipt Date: 20211124
  Transmission Date: 20220304
  Serious: No
  Sender: FDA-Public Use
  Company Number: None

PATIENT
  Age: 44 Year
  Sex: Male
  Weight: 181 kg

DRUGS (1)
  1. REMDESIVIR [Suspect]
     Active Substance: REMDESIVIR
     Indication: COVID-19
     Dosage: OTHER FREQUENCY : ONCE;?
     Route: 042

REACTIONS (9)
  - Dyspnoea [None]
  - Nausea [None]
  - Head discomfort [None]
  - Eye pain [None]
  - Feeling hot [None]
  - Flushing [None]
  - Hyperhidrosis [None]
  - Hypotension [None]
  - Infusion related reaction [None]

NARRATIVE: CASE EVENT DATE: 20211122
